FAERS Safety Report 15204308 (Version 1)
Quarter: 2018Q3

REPORT INFORMATION
  Report Type: Report from Study
  Country: DE (occurrence: DE)
  Receive Date: 20180726
  Receipt Date: 20180726
  Transmission Date: 20181010
  Serious: Yes (Hospitalization, Other)
  Sender: FDA-Public Use
  Company Number: DE-MYLANLABS-2018M1055100

PATIENT
  Sex: Female
  Weight: 61 kg

DRUGS (17)
  1. RAMILICH [Concomitant]
     Active Substance: RAMIPRIL
     Dosage: 10 MG, QD
     Route: 065
     Dates: start: 20160701
  2. RANEXA [Concomitant]
     Active Substance: RANOLAZINE
     Dosage: 750 MG, QD
     Route: 065
  3. RANEXA [Concomitant]
     Active Substance: RANOLAZINE
     Indication: CORONARY ARTERY DISEASE
     Dosage: 750 MG, QD
     Route: 065
     Dates: end: 20160620
  4. RANEXA [Concomitant]
     Active Substance: RANOLAZINE
     Dosage: 750 MG, QD
     Route: 065
     Dates: start: 20160701
  5. SIMVASTATIN. [Suspect]
     Active Substance: SIMVASTATIN
     Indication: CORONARY ARTERY DISEASE
     Dosage: UNK
  6. ADENURIC [Concomitant]
     Active Substance: FEBUXOSTAT
     Indication: HYPERURICAEMIA
     Dosage: 80 MG, QD
     Route: 065
  7. RAMILICH [Concomitant]
     Active Substance: RAMIPRIL
     Dosage: 20 MG, QD
     Route: 065
  8. VALSACOR [Concomitant]
     Active Substance: VALSARTAN
     Indication: HYPERTENSION
     Dosage: 320 MG, QD
     Route: 065
     Dates: end: 20160620
  9. VALSACOR COMP [Concomitant]
     Indication: HYPERTENSION
     Dosage: 1 DF, QD
     Route: 065
     Dates: start: 20160701
  10. ULTIBRO BREEZHALER [Suspect]
     Active Substance: GLYCOPYRRONIUM\INDACATEROL
     Indication: CHRONIC OBSTRUCTIVE PULMONARY DISEASE
     Dosage: 1 DF, 50 ?G/ 110 ?G (43/85?G), QD
     Route: 055
     Dates: start: 20150709
  11. RAMILICH [Concomitant]
     Active Substance: RAMIPRIL
     Indication: HYPERTENSION
     Dosage: 10 MG, QD
     Route: 065
     Dates: end: 20160620
  12. FORADIL [Suspect]
     Active Substance: FORMOTEROL FUMARATE
     Indication: CHRONIC OBSTRUCTIVE PULMONARY DISEASE
     Dosage: 24 UG, QD
     Route: 065
  13. FUROSEMID/FUROSEMIDE [Concomitant]
     Dosage: 30 MG, QD
     Route: 065
     Dates: start: 20160701
  14. VALSACOR COMP [Concomitant]
     Dosage: 1 DF, QD
     Route: 065
  15. SIMVASTATIN. [Suspect]
     Active Substance: SIMVASTATIN
     Indication: HYPERTENSION
     Dosage: 1 DF, QD
     Route: 065
     Dates: end: 20160620
  16. FUROSEMID/FUROSEMIDE [Concomitant]
     Indication: HYPERTENSION
     Dosage: 30 MG, QD
     Route: 065
     Dates: end: 20160620
  17. FUROSEMID/FUROSEMIDE [Concomitant]
     Dosage: 40 MG, QD
     Route: 065

REACTIONS (5)
  - Myopathy [Recovering/Resolving]
  - Blood creatine phosphokinase increased [Unknown]
  - Gastrooesophageal reflux disease [Unknown]
  - Cystitis [Recovered/Resolved]
  - Renal failure [Not Recovered/Not Resolved]

NARRATIVE: CASE EVENT DATE: 20160620
